FAERS Safety Report 23046956 (Version 2)
Quarter: 2023Q4

REPORT INFORMATION
  Report Type: Spontaneous
  Country: CZ (occurrence: CZ)
  Receive Date: 20231009
  Receipt Date: 20231122
  Transmission Date: 20240110
  Serious: Yes (Other)
  Sender: FDA-Public Use
  Company Number: CZ-TEVA-2023-CZ-2932666

PATIENT
  Age: 78 Year
  Sex: Male

DRUGS (7)
  1. BISOPROLOL [Suspect]
     Active Substance: BISOPROLOL\BISOPROLOL FUMARATE
     Indication: Atrial fibrillation
     Route: 065
  2. BISOPROLOL [Suspect]
     Active Substance: BISOPROLOL\BISOPROLOL FUMARATE
     Indication: Hypertension
  3. FUROSEMIDE [Suspect]
     Active Substance: FUROSEMIDE
     Indication: Peripheral swelling
     Route: 065
  4. FUROSEMIDE [Suspect]
     Active Substance: FUROSEMIDE
     Dosage: 40 MILLIGRAM DAILY; INCREASED TO
     Route: 065
  5. AMLODIPINE\HYDROCHLOROTHIAZIDE\OLMESARTAN [Suspect]
     Active Substance: AMLODIPINE\HYDROCHLOROTHIAZIDE\OLMESARTAN
     Indication: Peripheral swelling
     Route: 065
  6. DIOSMIN [Suspect]
     Active Substance: DIOSMIN
     Indication: Peripheral swelling
     Route: 065
  7. WARFARIN [Concomitant]
     Active Substance: WARFARIN
     Indication: Hypertension
     Route: 065

REACTIONS (2)
  - Bradycardia [Recovered/Resolved]
  - Therapeutic product effect incomplete [Unknown]
